FAERS Safety Report 12469345 (Version 1)
Quarter: 2016Q2

REPORT INFORMATION
  Report Type: Spontaneous
  Country: US (occurrence: US)
  Receive Date: 20160615
  Receipt Date: 20160615
  Transmission Date: 20160815
  Serious: Yes (Other)
  Sender: FDA-Public Use
  Company Number: US-TEVA-666786USA

PATIENT
  Age: 46 Year
  Sex: Female

DRUGS (4)
  1. TORADOL [Concomitant]
     Active Substance: KETOROLAC TROMETHAMINE
  2. FIORICET [Concomitant]
     Active Substance: ACETAMINOPHEN\BUTALBITAL\CAFFEINE
  3. ZECUITY [Suspect]
     Active Substance: SUMATRIPTAN SUCCINATE
     Route: 062
     Dates: start: 201605, end: 201605
  4. TRAMADOL. [Concomitant]
     Active Substance: TRAMADOL

REACTIONS (9)
  - Application site pain [Not Recovered/Not Resolved]
  - Application site dryness [Recovered/Resolved]
  - Application site erythema [Recovered/Resolved]
  - Application site exfoliation [Not Recovered/Not Resolved]
  - Application site paraesthesia [Recovered/Resolved]
  - Application site burn [Not Recovered/Not Resolved]
  - Nausea [Not Recovered/Not Resolved]
  - Application site swelling [Not Recovered/Not Resolved]
  - Dizziness [Unknown]

NARRATIVE: CASE EVENT DATE: 201605
